FAERS Safety Report 6141448-7 (Version None)
Quarter: 2009Q2

REPORT INFORMATION
  Report Type: 
  Country: None (occurrence: None)
  Receive Date: 20090402
  Receipt Date: 20090323
  Transmission Date: 20091009
  Serious: Yes (Hospitalization, Disabling)
  Sender: FDA-Public Use
  Company Number: US-MERCK-0811USA02809

PATIENT
  Age: 71 Year
  Sex: Female
  Weight: 111 kg

DRUGS (3)
  1. FOSAMAX [Suspect]
     Indication: OSTEOPOROSIS
     Route: 048
     Dates: start: 20030101, end: 20070108
  2. SYNTHROID [Concomitant]
     Indication: THYROID DISORDER
     Route: 065
     Dates: start: 19980101
  3. ZOCOR [Concomitant]
     Route: 065
     Dates: start: 20030101

REACTIONS (6)
  - ARTHROPATHY [None]
  - BENIGN NEOPLASM [None]
  - FISTULA [None]
  - INFECTION [None]
  - JAW DISORDER [None]
  - OSTEONECROSIS [None]
